FAERS Safety Report 7073879-5 (Version None)
Quarter: 2010Q4

REPORT INFORMATION
  Report Type: 
  Country: None (occurrence: None)
  Receive Date: 20101029
  Receipt Date: 20100831
  Transmission Date: 20110411
  Serious: No
  Sender: FDA-Public Use
  Company Number: A0878666A

PATIENT
  Age: 80 Year
  Sex: Male

DRUGS (3)
  1. ADVAIR DISKUS 100/50 [Suspect]
     Indication: BRONCHITIS
     Dosage: 1PUFF TWICE PER DAY
     Route: 055
     Dates: start: 20100701, end: 20100801
  2. CELEXA [Concomitant]
  3. DOXEPIN HCL [Concomitant]

REACTIONS (1)
  - RASH GENERALISED [None]
